FAERS Safety Report 21482279 (Version 4)
Quarter: 2023Q2

REPORT INFORMATION
  Report Type: Spontaneous
  Country: FR (occurrence: FR)
  Receive Date: 20221020
  Receipt Date: 20230413
  Transmission Date: 20230722
  Serious: Yes (Other)
  Sender: FDA-Public Use
  Company Number: FR-INSMED, INC.-2021-09676-FR

PATIENT
  Sex: Female

DRUGS (4)
  1. AZITHROMYCIN ANHYDROUS [Suspect]
     Active Substance: AZITHROMYCIN ANHYDROUS
     Indication: Product used for unknown indication
     Dosage: EVERY WEEK (TIW)
     Route: 065
  2. ARIKAYCE [Suspect]
     Active Substance: AMIKACIN
     Indication: Mycobacterial infection
     Dosage: 590 MILLIGRAM, ONCE A DAY (590 MILLIGRAM, QD)
     Dates: start: 20210924, end: 20220108
  3. ARIKAYCE [Suspect]
     Active Substance: AMIKACIN
     Dosage: 590 MILLIGRAM, ONCE A DAY
     Dates: start: 20220115
  4. ETHAMBUTOL HYDROCHLORIDE [Suspect]
     Active Substance: ETHAMBUTOL HYDROCHLORIDE
     Indication: Product used for unknown indication
     Dosage: UNK UNK, EVERY WEEK (UNK, TIW)
     Route: 065

REACTIONS (48)
  - Oxygen saturation decreased [Unknown]
  - Fall [Unknown]
  - Knee operation [Unknown]
  - Confusional state [Unknown]
  - Weight decreased [Unknown]
  - Aphasia [Unknown]
  - Cerebral disorder [Unknown]
  - Arthralgia [Not Recovered/Not Resolved]
  - Aphonia [Unknown]
  - Cough [Not Recovered/Not Resolved]
  - Dyspnoea [Recovering/Resolving]
  - Disturbance in attention [Not Recovered/Not Resolved]
  - Extrasystoles [Unknown]
  - Headache [Unknown]
  - Migraine [Unknown]
  - Fatigue [Not Recovered/Not Resolved]
  - Myalgia [Not Recovered/Not Resolved]
  - Ligament pain [Unknown]
  - Secretion discharge [Unknown]
  - Throat irritation [Unknown]
  - COVID-19 [Recovered/Resolved]
  - Hypertension [Unknown]
  - Ear inflammation [Unknown]
  - Memory impairment [Not Recovered/Not Resolved]
  - Bone pain [Not Recovered/Not Resolved]
  - Eye irritation [Unknown]
  - Decreased appetite [Not Recovered/Not Resolved]
  - Productive cough [Unknown]
  - Neck pain [Not Recovered/Not Resolved]
  - Visual impairment [Unknown]
  - Exposure via eye contact [Unknown]
  - Abdominal pain upper [Unknown]
  - Dyspepsia [Unknown]
  - Wheezing [Unknown]
  - Feeling abnormal [Unknown]
  - Musculoskeletal discomfort [Not Recovered/Not Resolved]
  - Tinnitus [Unknown]
  - Dysphonia [Not Recovered/Not Resolved]
  - Dizziness [Not Recovered/Not Resolved]
  - Dry eye [Unknown]
  - Chest pain [Unknown]
  - Mastication disorder [Unknown]
  - Vertigo [Unknown]
  - Accidental underdose [Unknown]
  - Device electrical finding [Unknown]
  - Drug dose omission by device [Unknown]
  - Therapy interrupted [Unknown]
  - Product dose omission issue [Unknown]

NARRATIVE: CASE EVENT DATE: 20210101
